FAERS Safety Report 4621048-8 (Version None)
Quarter: 2005Q1

REPORT INFORMATION
  Report Type: 
  Country: None (occurrence: None)
  Receive Date: 20050328
  Receipt Date: 20050316
  Transmission Date: 20050727
  Serious: Yes (Death, Hospitalization, Other)
  Sender: FDA-Public Use
  Company Number: 2005-03-1313

PATIENT
  Age: 47 Year
  Sex: Male

DRUGS (2)
  1. INTRON A [Suspect]
     Indication: HEPATITIS C
     Dosage: 10 MU TIW INTRAMUSCULAR
     Route: 030
     Dates: start: 20020201, end: 20020901
  2. INTERFERON BETA INJECTABLE [Suspect]
     Indication: HEPATITIS C
     Dosage: 3 MU BID
     Dates: start: 20020201

REACTIONS (21)
  - ANAEMIA [None]
  - ASPERGILLOSIS [None]
  - BACK PAIN [None]
  - BLOOD LACTATE DEHYDROGENASE INCREASED [None]
  - C-REACTIVE PROTEIN INCREASED [None]
  - CARDIAC VALVE DISEASE [None]
  - COLLAGEN-VASCULAR DISEASE [None]
  - ENDOCARDITIS [None]
  - EOSINOPHILIA [None]
  - FUNGAL SEPSIS [None]
  - INFARCTION [None]
  - INFECTION [None]
  - LEUKOCYTOSIS [None]
  - LYMPHOMA [None]
  - NECK PAIN [None]
  - PAIN IN EXTREMITY [None]
  - RENAL INFARCT [None]
  - RETINAL ARTERY OCCLUSION [None]
  - RETINAL EXUDATES [None]
  - RETINOPATHY [None]
  - SPLEEN DISORDER [None]
